FAERS Safety Report 5005686-9 (Version None)
Quarter: 2006Q2

REPORT INFORMATION
  Report Type: 
  Country: None (occurrence: None)
  Receive Date: 20060518
  Receipt Date: 20060512
  Transmission Date: 20061013
  Serious: Yes (Death)
  Sender: FDA-Public Use
  Company Number: US-JNJFOC-20051204088

PATIENT
  Age: 79 Year
  Sex: Male

DRUGS (11)
  1. DURAGESIC-100 [Suspect]
     Route: 062
  2. ATENOLOL [Concomitant]
     Indication: HYPERTENSION
  3. ZETIA [Concomitant]
  4. FIORINAL W/CODEINE [Concomitant]
  5. FIORINAL W/CODEINE [Concomitant]
  6. FIORINAL W/CODEINE [Concomitant]
  7. FIORINAL W/CODEINE [Concomitant]
  8. FIORINAL W/CODEINE [Concomitant]
     Indication: HEADACHE
     Dosage: 1 AS NECESSARY
  9. TYLENOL W/ CODEINE NO. 4 [Concomitant]
     Indication: BACK PAIN
  10. TYLENOL W/ CODEINE NO. 4 [Concomitant]
     Indication: HEADACHE
  11. NIASPAN 1000 [Concomitant]
     Dosage: TAKE AT BEDTIME

REACTIONS (1)
  - DEATH [None]
